FAERS Safety Report 11127242 (Version 1)
Quarter: 2015Q2

REPORT INFORMATION
  Report Type: Spontaneous
  Country: US (occurrence: None)
  Receive Date: 20150520
  Receipt Date: 20150520
  Transmission Date: 20150821
  Serious: No
  Sender: FDA-Public Use
  Company Number: None

PATIENT
  Age: 77 Year
  Sex: Female
  Weight: 84.82 kg

DRUGS (15)
  1. RESVERATROL [Concomitant]
     Active Substance: RESVERATROL
  2. CALCIUM CITRATE 500 MG WITH MAGNESIUM 80MG ZINC 10MG WITH VITAMIN D3 [Concomitant]
  3. LISINOPRIL. [Concomitant]
     Active Substance: LISINOPRIL
  4. ALLOPURINOL. [Concomitant]
     Active Substance: ALLOPURINOL
  5. FLAXSEED [Concomitant]
     Active Substance: FLAX SEED
  6. VITAMIN B12 [Concomitant]
     Active Substance: CYANOCOBALAMIN
  7. ESTER-C [Concomitant]
     Active Substance: CALCIUM\VITAMINS
  8. GLIMEPIRIDE. [Concomitant]
     Active Substance: GLIMEPIRIDE
  9. COQ10 [Concomitant]
     Active Substance: UBIDECARENONE
  10. NIFEDIPINE ER [Concomitant]
     Active Substance: NIFEDIPINE
  11. FENOFIBRATE. [Concomitant]
     Active Substance: FENOFIBRATE
  12. CENTRUM SILVER-WOMEN^S [Concomitant]
  13. FISH OIL [Concomitant]
     Active Substance: FISH OIL
  14. GLUCOSAMINE1500 MG WITH CHONDROITIN [Concomitant]
  15. BROMFED DM [Suspect]
     Active Substance: BROMPHENIRAMINE MALEATE\DEXTROMETHORPHAN HYDROBROMIDE\PSEUDOEPHEDRINE HYDROCHLORIDE
     Indication: BRONCHITIS
     Route: 048
     Dates: start: 20150421, end: 20150425

REACTIONS (2)
  - Dyspnoea [None]
  - Dizziness postural [None]

NARRATIVE: CASE EVENT DATE: 20150425
